FAERS Safety Report 24844197 (Version 1)
Quarter: 2025Q1

REPORT INFORMATION
  Report Type: Spontaneous
  Country: PL (occurrence: PL)
  Receive Date: 20250115
  Receipt Date: 20250115
  Transmission Date: 20250408
  Serious: Yes (Other)
  Sender: AUROBINDO
  Company Number: PL-URPL-DML-MLP.4401.1.5411.2021

PATIENT
  Age: 68 Year
  Sex: Female
  Weight: 84 kg

DRUGS (1)
  1. CARBOPLATIN [Suspect]
     Active Substance: CARBOPLATIN
     Indication: Product used for unknown indication
     Route: 042
     Dates: start: 20210802, end: 20210802

REACTIONS (4)
  - Dyspnoea [Unknown]
  - Chest discomfort [Unknown]
  - Hypoaesthesia [Unknown]
  - Restlessness [Unknown]

NARRATIVE: CASE EVENT DATE: 20210802
